FAERS Safety Report 8908544 (Version 4)
Quarter: 2013Q1

REPORT INFORMATION
  Report Type: Spontaneous
  Country: JP (occurrence: JP)
  Receive Date: 20121114
  Receipt Date: 20130101
  Transmission Date: 20140127
  Serious: Yes (Death, Life-Threatening, Hospitalization)
  Sender: FDA-Public Use
  Company Number: JP-ROCHE-1154995

PATIENT
  Age: 76 Year
  Sex: Male

DRUGS (3)
  1. PEGASYS [Suspect]
     Indication: CHRONIC HEPATITIS C
     Route: 058
     Dates: start: 20120807, end: 20120904
  2. PEGASYS [Suspect]
     Indication: CHRONIC HEPATITIS C
     Route: 058
     Dates: start: 20120911, end: 20121030
  3. PEGASYS [Suspect]
     Indication: CHRONIC HEPATITIS C
     Route: 058
     Dates: start: 20121106

REACTIONS (4)
  - Thrombotic thrombocytopenic purpura [Fatal]
  - Brain stem haemorrhage [Fatal]
  - Lacunar infarction [Not Recovered/Not Resolved]
  - Upper respiratory tract infection [Unknown]
